FAERS Safety Report 17444491 (Version 2)
Quarter: 2020Q1

REPORT INFORMATION
  Report Type: Spontaneous
  Country: CH (occurrence: CH)
  Receive Date: 20200221
  Receipt Date: 20200226
  Transmission Date: 20200409
  Serious: Yes (Hospitalization)
  Sender: FDA-Public Use
  Company Number: CH-ROCHE-2550252

PATIENT
  Age: 47 Year
  Sex: Male

DRUGS (18)
  1. CALCIPARINE [Suspect]
     Active Substance: HEPARIN CALCIUM
     Indication: PRODUCT USED FOR UNKNOWN INDICATION
     Dosage: 5000 INTERNATIONAL UNIT?EVERY 2 DAY(S)
     Route: 042
     Dates: start: 20200115, end: 20200118
  2. URISPAS [Concomitant]
     Active Substance: FLAVOXATE HYDROCHLORIDE
  3. TEMGESIC [Suspect]
     Active Substance: BUPRENORPHINE HYDROCHLORIDE
     Indication: PRODUCT USED FOR UNKNOWN INDICATION
     Dosage: 0.2 MILLIGRAM EVERY 3?DAY(S)
     Route: 060
     Dates: start: 20200117, end: 20200118
  4. VALGANCICLOVIR. [Suspect]
     Active Substance: VALGANCICLOVIR
     Indication: PRODUCT USED FOR UNKNOWN INDICATION
     Dosage: 450 MILLIGRAM EVERY 2?DAY(S)
     Route: 048
     Dates: start: 20200117, end: 20200121
  5. FOLIC ACID. [Concomitant]
     Active Substance: FOLIC ACID
  6. RENVELA [Concomitant]
     Active Substance: SEVELAMER CARBONATE
  7. PROGRAF [Suspect]
     Active Substance: TACROLIMUS
     Indication: PROPHYLAXIS AGAINST TRANSPLANT REJECTION
     Route: 065
     Dates: start: 20200112, end: 20200122
  8. MYFORTIC [Suspect]
     Active Substance: MYCOPHENOLATE SODIUM
     Indication: PROPHYLAXIS AGAINST TRANSPLANT REJECTION
     Dosage: 720 MILLIGRAM EVERY 2?DAY(S)
     Route: 048
     Dates: start: 20200113, end: 20200122
  9. SIMULECT [Concomitant]
     Active Substance: BASILIXIMAB
  10. ROCEPHIN [Suspect]
     Active Substance: CEFTRIAXONE SODIUM
     Indication: ANTIBIOTIC PROPHYLAXIS
     Dosage: 2 GRAM TOTAL IN TOTAL
     Route: 065
     Dates: start: 20200114, end: 20200114
  11. LASIX [Concomitant]
     Active Substance: FUROSEMIDE
  12. ESOMEPRAZOLE. [Suspect]
     Active Substance: ESOMEPRAZOLE MAGNESIUM
     Indication: PRODUCT USED FOR UNKNOWN INDICATION
     Dosage: 20 MILLIGRAM EVERY 1?DAY(S) DEFINITION OF THE?TIME INTERVAL UNIT: AS?NESESSARY: 20200120
     Route: 048
     Dates: start: 20200113, end: 20200120
  13. DAFALGAN [Suspect]
     Active Substance: ACETAMINOPHEN
     Indication: PRODUCT USED FOR UNKNOWN INDICATION
     Dosage: 1000 MILLIGRAM EVERY 3?DAY(S)
     Route: 065
     Dates: start: 20200115, end: 20200120
  14. FAMOTIDINE. [Concomitant]
     Active Substance: FAMOTIDINE
  15. CALCIMAGON-D3 [Concomitant]
     Active Substance: CALCIUM\CHOLECALCIFEROL
  16. SOLU-MEDROL [Concomitant]
     Active Substance: METHYLPREDNISOLONE SODIUM SUCCINATE
  17. BACTRIM [Suspect]
     Active Substance: SULFAMETHOXAZOLE\TRIMETHOPRIM
     Indication: ANTIBIOTIC PROPHYLAXIS
     Route: 048
     Dates: start: 20200117, end: 20200120
  18. PREDNISONE. [Concomitant]
     Active Substance: PREDNISONE

REACTIONS (1)
  - Hepatocellular injury [Not Recovered/Not Resolved]

NARRATIVE: CASE EVENT DATE: 20200120
